FAERS Safety Report 7767020-0 (Version None)
Quarter: 2011Q3

REPORT INFORMATION
  Report Type: 
  Country: None (occurrence: None)
  Receive Date: 20110922
  Receipt Date: 20100825
  Transmission Date: 20111222
  Serious: Yes (Hospitalization, Other)
  Sender: FDA-Public Use
  Company Number: US-ASTRAZENECA-2007UW05495

PATIENT
  Age: 342 Month
  Sex: Female
  Weight: 115.2 kg

DRUGS (42)
  1. SEROQUEL [Suspect]
     Route: 048
     Dates: start: 20041001, end: 20051001
  2. PROVENTIL [Concomitant]
  3. LANTUS [Concomitant]
  4. ABILIFY [Concomitant]
     Dates: start: 20080101
  5. HYDROCODONE [Concomitant]
     Indication: PAIN
     Dosage: 5/500 TWO TIMES A DAY
     Dates: start: 20040730
  6. PRINIVIL [Concomitant]
     Dates: start: 20040730
  7. SEROQUEL [Suspect]
     Indication: BIPOLAR DISORDER
     Dosage: 300 MG TO 450 MG
     Route: 048
     Dates: start: 20030322
  8. SEROQUEL [Suspect]
     Route: 048
     Dates: start: 20041001, end: 20051001
  9. SEROQUEL [Suspect]
     Route: 048
     Dates: start: 20041001, end: 20051001
  10. RISPERDAL [Concomitant]
     Indication: PSYCHOTIC DISORDER
     Dates: start: 20040101, end: 20050101
  11. XANAX [Concomitant]
  12. BUSPAR [Concomitant]
     Dates: start: 20070101, end: 20090101
  13. KLOR-CON [Concomitant]
     Dosage: 20 MEQ DAILY
     Route: 048
     Dates: start: 20050410
  14. DIAZEPAM [Concomitant]
     Dates: start: 20040701
  15. SEROQUEL [Suspect]
     Indication: SLEEP DISORDER
     Dosage: 300 MG TO 450 MG
     Route: 048
     Dates: start: 20030322
  16. SEROQUEL [Suspect]
     Indication: ANXIETY
     Dosage: 300 MG TO 450 MG
     Route: 048
     Dates: start: 20030322
  17. ABILIFY [Concomitant]
     Dates: start: 20051111
  18. ALDACTONE [Concomitant]
     Route: 048
     Dates: start: 20050410
  19. PROTONIX [Concomitant]
     Route: 048
     Dates: start: 20050410
  20. SEROQUEL [Suspect]
     Dosage: 25MG-300MG
     Route: 048
     Dates: start: 20041001
  21. RISPERDAL [Concomitant]
     Indication: DEPRESSION
     Dates: start: 20040101, end: 20050101
  22. QUESTRAN [Concomitant]
     Indication: DIARRHOEA
     Dosage: ONE PACKET DAILY TWO TIMES A DAY
     Route: 048
     Dates: start: 20050410
  23. HUMULIN R [Concomitant]
     Dosage: SLIDING SCALE
     Route: 058
     Dates: start: 20050411
  24. PAXIL [Concomitant]
     Dates: start: 20040730
  25. TRAZODONE HYDROCHLORIDE [Concomitant]
     Dosage: 100 MG ONE TO THREE NIGHTLY
     Dates: start: 20051117
  26. ATARAX [Concomitant]
  27. HALDOL [Concomitant]
     Dates: start: 20070101
  28. COUMADIN [Concomitant]
     Dosage: 5 MG TO 10 MG
     Route: 048
     Dates: start: 20040730
  29. PAROXETINE HCL [Concomitant]
  30. MUCINEX [Concomitant]
  31. PARLODEL [Concomitant]
     Dates: start: 20040701
  32. ZYPREXA [Concomitant]
     Indication: DEPRESSION
  33. SEROQUEL [Suspect]
     Dosage: 25MG-300MG
     Route: 048
     Dates: start: 20041001
  34. SEROQUEL [Suspect]
     Dosage: 25MG-300MG
     Route: 048
     Dates: start: 20041001
  35. LORTAB [Concomitant]
  36. GLUCOPHAGE [Concomitant]
     Route: 048
     Dates: start: 20040730
  37. AMITRIPTYLINE HCL [Concomitant]
     Dates: start: 20040730
  38. LOVENOX [Concomitant]
  39. WELLBUTRIN [Concomitant]
  40. LEXAPRO [Concomitant]
     Route: 048
     Dates: start: 20050410
  41. LASIX [Concomitant]
     Dosage: 80 MG TO 100 MG
     Route: 048
     Dates: start: 20050411
  42. ZYPREXA [Concomitant]
     Indication: BIPOLAR DISORDER

REACTIONS (6)
  - TYPE 2 DIABETES MELLITUS [None]
  - TYPE 1 DIABETES MELLITUS [None]
  - HYPERGLYCAEMIA [None]
  - WEIGHT INCREASED [None]
  - GESTATIONAL DIABETES [None]
  - DIABETES MELLITUS INADEQUATE CONTROL [None]
